FAERS Safety Report 8849838 (Version 2)
Quarter: 2013Q1

REPORT INFORMATION
  Report Type: Spontaneous
  Country: US (occurrence: US)
  Receive Date: 20121019
  Receipt Date: 20130125
  Transmission Date: 20140127
  Serious: Yes (Hospitalization, Other)
  Sender: FDA-Public Use
  Company Number: US-ELI_LILLY_AND_COMPANY-US201210003736

PATIENT
  Age: 52 Year
  Sex: Female
  Weight: 84.81 kg

DRUGS (4)
  1. BYETTA [Suspect]
     Indication: TYPE 2 DIABETES MELLITUS
     Dosage: UNK
     Route: 058
     Dates: start: 20060919, end: 20081016
  2. ACTOS [Concomitant]
     Indication: DIABETES MELLITUS
     Dosage: UNK
     Dates: start: 2006
  3. GLUCOPHAGE [Concomitant]
     Indication: DIABETES MELLITUS
  4. NAPROXEN [Concomitant]
     Dosage: UNK

REACTIONS (3)
  - Pancreatic carcinoma [Unknown]
  - Pancreatitis [Unknown]
  - Insulin resistant diabetes [Unknown]
